FAERS Safety Report 19101017 (Version 1)
Quarter: 2021Q2

REPORT INFORMATION
  Report Type: Spontaneous
  Country: US (occurrence: US)
  Receive Date: 20210406
  Receipt Date: 20210406
  Transmission Date: 20210717
  Serious: Yes (Hospitalization)
  Sender: FDA-Public Use
  Company Number: None

PATIENT
  Sex: Female

DRUGS (3)
  1. HUMIRA [Suspect]
     Active Substance: ADALIMUMAB
     Indication: PSORIATIC ARTHROPATHY
     Route: 058
     Dates: start: 20190115
  2. XARELTO [Concomitant]
     Active Substance: RIVAROXABAN
  3. METOCLOPRAM [Concomitant]
     Active Substance: METOCLOPRAMIDE

REACTIONS (2)
  - Fall [None]
  - Psoriasis [None]
